FAERS Safety Report 9482118 (Version 1)
Quarter: 2013Q3

REPORT INFORMATION
  Report Type: Spontaneous
  Country: US (occurrence: US)
  Receive Date: 20130828
  Receipt Date: 20130828
  Transmission Date: 20140515
  Serious: Yes (Other)
  Sender: FDA-Public Use
  Company Number: PHEH2013US017984

PATIENT
  Sex: Male

DRUGS (10)
  1. EXELON PATCH [Suspect]
     Dosage: 13.3 MG, QD
     Route: 062
     Dates: start: 201305
  2. LEVOTHYROXINE [Concomitant]
     Dosage: 50 MG, UNK
  3. SERTRALINE [Concomitant]
     Dosage: 50 MG, UNK
  4. BABY ASPIRIN [Concomitant]
     Dosage: 81 MG, UNK
  5. NEXIUM HP [Concomitant]
     Dosage: 40 MG, UNK
  6. NAMENDA [Concomitant]
     Dosage: 10 MG, UNK
  7. VITAMIN B12 [Concomitant]
     Dosage: 100 MG, 2 TIMES PER WEEK
  8. MULTI-VIT [Concomitant]
     Dosage: UNK UKN, UNK
  9. SIMVASTATIN [Concomitant]
     Dosage: 80 MG, UNK
  10. LEVOCETIRIZINE [Concomitant]
     Dosage: 5 MG, UNK

REACTIONS (5)
  - Hernia [Unknown]
  - Fall [Unknown]
  - Dizziness [Unknown]
  - Tinnitus [Unknown]
  - Feeling abnormal [Unknown]
